FAERS Safety Report 8721210 (Version 3)
Quarter: 2014Q2

REPORT INFORMATION
  Report Type: Spontaneous
  Country: US (occurrence: US)
  Receive Date: 20120813
  Receipt Date: 20131017
  Transmission Date: 20141212
  Serious: Yes (Other)
  Sender: FDA-Public Use
  Company Number: US-PFIZER INC-2012193217

PATIENT
  Age: 47 Year
  Sex: Female

DRUGS (1)
  1. PREMPRO [Suspect]
     Dosage: 0.625/2.5MG 1 TAB BY MOUTH DAILY
     Route: 048

REACTIONS (5)
  - Autoimmune disorder [Unknown]
  - Thyroid disorder [Unknown]
  - Fatigue [Unknown]
  - Memory impairment [Unknown]
  - Impaired work ability [Unknown]
